FAERS Safety Report 4796328-6 (Version None)
Quarter: 2005Q4

REPORT INFORMATION
  Report Type: 
  Country: None (occurrence: None)
  Receive Date: 20051007
  Receipt Date: 20050928
  Transmission Date: 20060501
  Serious: Yes (Hospitalization)
  Sender: FDA-Public Use
  Company Number: 218123

PATIENT
  Age: 54 Year
  Sex: Male

DRUGS (18)
  1. RITUXAN [Suspect]
     Indication: NON-HODGKIN'S LYMPHOMA
     Dosage: 600 MG, 600 MG, INTRAVENOUS; 600 MG; 600  MG
     Dates: start: 20011017
  2. RITUXAN [Suspect]
     Indication: NON-HODGKIN'S LYMPHOMA
     Dosage: 600 MG, 600 MG, INTRAVENOUS; 600 MG; 600  MG
     Dates: start: 20011024
  3. RITUXAN [Suspect]
     Indication: NON-HODGKIN'S LYMPHOMA
     Dosage: 600 MG, 600 MG, INTRAVENOUS; 600 MG; 600  MG
     Dates: start: 20011031
  4. RITUXAN [Suspect]
     Indication: NON-HODGKIN'S LYMPHOMA
     Dosage: 600 MG, 600 MG, INTRAVENOUS; 600 MG; 600  MG
     Dates: start: 20011107
  5. CYTARABINE [Concomitant]
  6. CISPLATIN [Concomitant]
  7. IBUPROFEN [Concomitant]
  8. DIPHENHYDRAMINE HCL [Concomitant]
  9. LAMIVUDINE [Concomitant]
  10. GLYCYRON #2 (CALCIUM CARBONATE, GLYCINE, LICORICE, METHIONINE) [Concomitant]
  11. URSODESOXYCHOLIC ACID (URSODEOXYCHOLIC ACID) [Concomitant]
  12. RIFAMPICIN [Concomitant]
  13. SULFAMETHOXAZOLE/TRIMETHOPRIM (TRIMETHOPRIM, SULFAMETHOXAZOLE) [Concomitant]
  14. FLUCONAZOLE [Concomitant]
  15. CIMETIDINE [Concomitant]
  16. PREDNISONE [Concomitant]
  17. LENOGRASTIM (LENOGRASTIM) [Concomitant]
  18. DEXAMETHASONE SODIUM PHOSPHATE [Concomitant]

REACTIONS (8)
  - BLOOD LACTATE DEHYDROGENASE INCREASED [None]
  - BLOOD POTASSIUM DECREASED [None]
  - C-REACTIVE PROTEIN INCREASED [None]
  - HYPERCALCAEMIA [None]
  - NEUTROPHIL COUNT DECREASED [None]
  - NEUTROPHIL PERCENTAGE INCREASED [None]
  - PLATELET COUNT DECREASED [None]
  - WHITE BLOOD CELL COUNT DECREASED [None]
